FAERS Safety Report 16028144 (Version 1)
Quarter: 2019Q1

REPORT INFORMATION
  Report Type: Spontaneous
  Country: DE (occurrence: DE)
  Receive Date: 20190304
  Receipt Date: 20190304
  Transmission Date: 20190418
  Serious: Yes (Hospitalization)
  Sender: FDA-Public Use
  Company Number: DE-SUN PHARMACEUTICAL INDUSTRIES LTD-2019RR-200439

PATIENT
  Age: 4 Year
  Sex: Female
  Weight: 13 kg

DRUGS (5)
  1. LEVETIRACETAM. [Suspect]
     Active Substance: LEVETIRACETAM
     Indication: EPILEPSY
     Dosage: DAILY DOSE: 20 MG/KG MILLIGRAM(S)/KILOGRAM EVERY DAYS
     Route: 065
  2. INSULIN [Suspect]
     Active Substance: INSULIN NOS
     Indication: DIABETES MELLITUS
     Dosage: ()
     Route: 065
  3. VITADRAL-TROPFEN [Concomitant]
     Indication: CONGENITAL ANOMALY
     Dosage: DAILY DOSE: 2 GTT DROP(S) EVERY DAYS
     Route: 065
  4. VEDROP 50 MG/ML [Concomitant]
     Indication: CONGENITAL ANOMALY
     Dosage: DAILY DOSE: 2 ML MILLILITRE(S) EVERY DAYS
     Route: 065
  5. MULTIBIONTA [Concomitant]
     Active Substance: MINERALS\PROBIOTICS NOS\VITAMINS
     Indication: CONGENITAL ANOMALY
     Dosage: DAILY DOSE: 36 GTT DROP(S) EVERY DAYS
     Route: 065

REACTIONS (4)
  - Electrolyte imbalance [Recovered/Resolved]
  - Ketoacidosis [Recovered/Resolved]
  - Glycosuria [Recovered/Resolved]
  - Tachycardia [Recovered/Resolved]

NARRATIVE: CASE EVENT DATE: 20180910
